FAERS Safety Report 8763750 (Version 2)
Quarter: 2012Q4

REPORT INFORMATION
  Report Type: 
  Country: CA (occurrence: CA)
  Receive Date: 20120831
  Receipt Date: 20120908
  Transmission Date: 20130627
  Serious: Yes (Hospitalization, Other)
  Sender: FDA-Public Use
  Company Number: PHHY2012CA075178

PATIENT
  Age: 63 Year
  Sex: Female

DRUGS (1)
  1. ACLASTA [Suspect]
     Indication: OSTEOPOROSIS
     Dosage: 5 mg, yearly
     Route: 042
     Dates: start: 20110824

REACTIONS (2)
  - Fall [Recovering/Resolving]
  - Humerus fracture [Recovering/Resolving]
